FAERS Safety Report 17361684 (Version 3)
Quarter: 2020Q1

REPORT INFORMATION
  Report Type: Spontaneous
  Country: PL (occurrence: PL)
  Receive Date: 20200203
  Receipt Date: 20200207
  Transmission Date: 20200409
  Serious: Yes (Hospitalization, Other)
  Sender: FDA-Public Use
  Company Number: PL-MYLANLABS-2020M1010745

PATIENT
  Age: 22 Year
  Sex: Male

DRUGS (16)
  1. CLOZAPINE. [Interacting]
     Active Substance: CLOZAPINE
     Dosage: 25 MILLIGRAM, QD
     Route: 065
  2. VALPROIC ACID. [Interacting]
     Active Substance: VALPROIC ACID
     Indication: SCHIZOPHRENIA
     Dosage: 1200 MILLIGRAM,
     Route: 065
  3. RISPERDAL [Interacting]
     Active Substance: RISPERIDONE
     Dosage: 6 MILLIGRAM, QD
     Route: 065
  4. PROPRANOLOL [Concomitant]
     Active Substance: PROPRANOLOL HYDROCHLORIDE
     Indication: PRODUCT USED FOR UNKNOWN INDICATION
     Dosage: 20 MILLIGRAM, QD/10 MG, BID
     Route: 065
  5. OLANZAPINE. [Suspect]
     Active Substance: OLANZAPINE
     Indication: SCHIZOPHRENIA
     Dosage: 20 MILLIGRAM, EVERY 10 WEEKS
     Route: 065
  6. CLOZAPINE. [Interacting]
     Active Substance: CLOZAPINE
     Indication: PSYCHOTIC DISORDER
     Dosage: 50 UNK
     Route: 065
  7. CLOZAPINE. [Interacting]
     Active Substance: CLOZAPINE
     Dosage: 50 MG
     Route: 065
  8. RAMIPRIL. [Suspect]
     Active Substance: RAMIPRIL
     Indication: PRODUCT USED FOR UNKNOWN INDICATION
     Dosage: 2.5 MILLIGRAM, QOD
     Route: 065
  9. SERTRALINE [Concomitant]
     Active Substance: SERTRALINE HYDROCHLORIDE
     Indication: SCHIZOPHRENIA
     Dosage: 50 MILLIGRAM, EVERY 5 WEEKS
     Route: 065
  10. PERAZINE [Suspect]
     Active Substance: PERAZINE
     Indication: SCHIZOPHRENIA
     Dosage: 300 MILLIGRAM
     Route: 065
  11. CLOZAPINE. [Interacting]
     Active Substance: CLOZAPINE
     Indication: SCHIZOPHRENIA
     Dosage: 100 MILLIGRAM, QD ON DAY 15
     Route: 065
  12. ZUCLOPENTHIXOL [Suspect]
     Active Substance: ZUCLOPENTHIXOL
     Indication: SCHIZOPHRENIA
     Dosage: 30 MILLIGRAM, QD
     Route: 065
  13. RISPERDAL [Interacting]
     Active Substance: RISPERIDONE
     Dosage: 1 MG/DAY THREE TIMES A DAY
  14. VALPROIC ACID. [Interacting]
     Active Substance: VALPROIC ACID
     Dosage: 1200 MILLIGRAM, QD
     Route: 065
  15. RISPERDAL [Interacting]
     Active Substance: RISPERIDONE
     Indication: SCHIZOPHRENIA
     Dosage: 4 MILLIGRAM, QD
     Route: 048
  16. RISPERDAL [Interacting]
     Active Substance: RISPERIDONE
     Dosage: 6 MILLIGRAM, EVERY 12 WEEKS
     Route: 048

REACTIONS (5)
  - Psychotic symptom [Unknown]
  - Myocarditis [Unknown]
  - Chest pain [Unknown]
  - Sinus tachycardia [Unknown]
  - Drug interaction [Recovering/Resolving]
